FAERS Safety Report 22337006 (Version 2)
Quarter: 2023Q2

REPORT INFORMATION
  Report Type: Spontaneous
  Country: JP (occurrence: JP)
  Receive Date: 20230518
  Receipt Date: 20230524
  Transmission Date: 20230722
  Serious: Yes (Hospitalization, Other)
  Sender: FDA-Public Use
  Company Number: JP-BRISTOL-MYERS SQUIBB COMPANY-2023-066714

PATIENT
  Age: 55 Year
  Sex: Female
  Weight: 55 kg

DRUGS (3)
  1. YERVOY [Suspect]
     Active Substance: IPILIMUMAB
     Indication: Lung neoplasm malignant
     Dosage: 1???:42?
     Route: 041
  2. YERVOY [Suspect]
     Active Substance: IPILIMUMAB
     Dosage: 1???:42?
  3. OPDIVO [Suspect]
     Active Substance: NIVOLUMAB
     Indication: Lung neoplasm malignant
     Dosage: 1???:42?
     Route: 041

REACTIONS (10)
  - Nausea [Unknown]
  - Type 1 diabetes mellitus [Unknown]
  - Thirst [Unknown]
  - Tremor [Unknown]
  - Vomiting [Unknown]
  - Palpitations [Unknown]
  - Malaise [Unknown]
  - Decreased appetite [Unknown]
  - Hyperthyroidism [Unknown]
  - Hypothyroidism [Unknown]
